FAERS Safety Report 22291752 (Version 1)
Quarter: 2023Q2

REPORT INFORMATION
  Report Type: Spontaneous
  Country: US (occurrence: None)
  Receive Date: 20230505
  Receipt Date: 20230505
  Transmission Date: 20230722
  Serious: Yes (Hospitalization)
  Sender: FDA-Public Use
  Company Number: None

PATIENT
  Age: 61 Year
  Sex: Male
  Weight: 57.2 kg

DRUGS (8)
  1. OSELTAMIVIR [Suspect]
     Active Substance: OSELTAMIVIR
     Indication: Antiviral prophylaxis
     Dosage: FREQUENCY : DAILY;?
     Route: 048
     Dates: start: 20230405, end: 20230413
  2. BRIMONIDINE-TIMOLOL OPTH [Concomitant]
     Dates: start: 20221014
  3. CALCIUM CITRATE 315 MG [Concomitant]
     Dates: start: 20230206
  4. DENOSUMAB 50 MG [Concomitant]
     Dates: start: 20221201
  5. LACOSAMIDE 100 MG [Concomitant]
     Dates: start: 20221201
  6. LEVETIRACETAM 1500 MG [Concomitant]
     Dates: start: 20221014
  7. TAMSULOSIN [Concomitant]
     Active Substance: TAMSULOSIN
     Dates: start: 20221014
  8. TRAVOPROST 0.004% OPTH [Concomitant]
     Dates: start: 20221014

REACTIONS (2)
  - Generalised tonic-clonic seizure [None]
  - Oxygen saturation decreased [None]

NARRATIVE: CASE EVENT DATE: 20230413
